FAERS Safety Report 5450955-1 (Version None)
Quarter: 2007Q3

REPORT INFORMATION
  Report Type: 
  Country: None (occurrence: None)
  Receive Date: 20070911
  Receipt Date: 20070830
  Transmission Date: 20080115
  Serious: Yes (Hospitalization)
  Sender: FDA-Public Use
  Company Number: FRP07000813

PATIENT
  Age: 78 Year
  Sex: Female

DRUGS (7)
  1. ACTONEL [Suspect]
     Dosage: 35 MG, 1/WEEK, ORAL
     Route: 048
     Dates: end: 20070712
  2. ELAVIL [Suspect]
     Dosage: ORAL
     Route: 048
     Dates: start: 20070401, end: 20070712
  3. TRILEPTAL [Suspect]
     Dosage: ORAL
     Route: 048
     Dates: start: 19700101, end: 20070712
  4. TERCIAN /00759301/(CYAMEMAZINE) [Suspect]
     Dosage: ORAL
     Route: 048
     Dates: end: 20070712
  5. PRAVASTATIN [Suspect]
     Dosage: ORAL
     Route: 048
     Dates: end: 20070712
  6. AVLOCARDYL /00030001/(PROPRANOLOL) [Suspect]
     Dosage: ORAL
     Route: 048
     Dates: end: 20070712
  7. ATARAX [Suspect]
     Dates: end: 20070712

REACTIONS (9)
  - ABDOMINAL PAIN LOWER [None]
  - ANAEMIA [None]
  - ASTHENIA [None]
  - DIABETES MELLITUS [None]
  - HEPATITIS CHOLESTATIC [None]
  - HEPATOMEGALY [None]
  - JAUNDICE CHOLESTATIC [None]
  - PLATELET COUNT INCREASED [None]
  - SCRATCH [None]
